FAERS Safety Report 9771989 (Version 2)
Quarter: 2013Q4

REPORT INFORMATION
  Report Type: Report from Study
  Country: CA (occurrence: CA)
  Receive Date: 20131219
  Receipt Date: 20131219
  Transmission Date: 20140711
  Serious: Yes (Other)
  Sender: FDA-Public Use
  Company Number: CA-ROCHE-791355

PATIENT
  Age: 69 Year
  Sex: Male
  Weight: 74.8 kg

DRUGS (15)
  1. RITUXAN [Suspect]
     Indication: RHEUMATOID ARTHRITIS
     Dosage: DAY 1 AND DAY 15, LAST DOSE ON:14/FRB/2013
     Route: 042
  2. PLAQUENIL [Concomitant]
  3. TAMSULOSIN [Concomitant]
  4. FOLIC ACID [Concomitant]
  5. PANCRELIPASE [Concomitant]
  6. AVODART [Concomitant]
  7. DIPHENHYDRAMINE HCL [Concomitant]
     Route: 048
     Dates: start: 20130131
  8. ACETAMINOPHEN [Concomitant]
     Route: 048
     Dates: start: 20130131
  9. METHYLPREDNISOLONE [Concomitant]
     Route: 042
     Dates: start: 20130131
  10. NASONEX [Concomitant]
  11. GLEEVEC [Concomitant]
  12. HYDROXYCHLOROQUINE [Concomitant]
  13. TECTA [Concomitant]
  14. OMEGA 3 [Concomitant]
  15. VITAMIN B12 [Concomitant]

REACTIONS (2)
  - Bladder disorder [Unknown]
  - Rheumatoid arthritis [Unknown]
